FAERS Safety Report 23853815 (Version 1)
Quarter: 2024Q2

REPORT INFORMATION
  Report Type: Spontaneous
  Country: IL (occurrence: IL)
  Receive Date: 20240514
  Receipt Date: 20240514
  Transmission Date: 20240716
  Serious: Yes (Other)
  Sender: FDA-Public Use
  Company Number: IL-TEVA-VS-3184898

PATIENT
  Age: 59 Year
  Sex: Female

DRUGS (9)
  1. OXALIPLATIN [Suspect]
     Active Substance: OXALIPLATIN
     Indication: Colon cancer
     Dosage: THIS IS THE 5TH CYCLE
     Route: 065
  2. OXALIPLATIN [Suspect]
     Active Substance: OXALIPLATIN
     Indication: Colon cancer
     Route: 065
     Dates: start: 20240407
  3. AKYNZEO [Concomitant]
     Indication: Product used for unknown indication
  4. AVASTIN [Concomitant]
     Active Substance: BEVACIZUMAB
     Indication: Product used for unknown indication
  5. dexa [Concomitant]
     Indication: Product used for unknown indication
  6. DIPHENHYDRAMINE [Concomitant]
     Active Substance: DIPHENHYDRAMINE
     Indication: Product used for unknown indication
  7. HYDRO [Concomitant]
     Active Substance: ALCOHOL
     Indication: Product used for unknown indication
  8. LEUCOVORIN [Concomitant]
     Active Substance: LEUCOVORIN\LEUCOVORIN CALCIUM
     Indication: Product used for unknown indication
  9. OMEPRAZOLE [Concomitant]
     Active Substance: DONEPEZIL HYDROCHLORIDE\OMEPRAZOLE\OMEPRAZOLE MAGNESIUM
     Indication: Product used for unknown indication

REACTIONS (6)
  - Asphyxia [Unknown]
  - Hyperhidrosis [Unknown]
  - Erythema [Unknown]
  - Presyncope [Unknown]
  - Hypertension [Unknown]
  - Dyspnoea [Unknown]

NARRATIVE: CASE EVENT DATE: 20240401
